FAERS Safety Report 8587637-3 (Version None)
Quarter: 2012Q3

REPORT INFORMATION
  Report Type: 
  Country: None (occurrence: None)
  Receive Date: 20120811
  Receipt Date: 20120731
  Transmission Date: 20120928
  Serious: No
  Sender: FDA-Public Use
  Company Number: US-ASTRAZENECA-2012SE54158

PATIENT
  Sex: Male

DRUGS (4)
  1. WELCHOL [Concomitant]
  2. ENTOCORT EC [Suspect]
     Route: 048
  3. ENTOCORT EC [Suspect]
     Indication: COLITIS MICROSCOPIC
     Route: 048
     Dates: start: 20080101
  4. ENTOCORT EC [Suspect]
     Route: 048

REACTIONS (3)
  - DIARRHOEA [None]
  - INTENTIONAL DRUG MISUSE [None]
  - OFF LABEL USE [None]
